FAERS Safety Report 5209866-9 (Version None)
Quarter: 2007Q1

REPORT INFORMATION
  Report Type: 
  Country: None (occurrence: None)
  Receive Date: 20061130
  Receipt Date: 20051229
  Transmission Date: 20070707
  Serious: Yes (Other)
  Sender: FDA-Public Use
  Company Number: 2005095791

PATIENT
  Age: 47 Year
  Sex: Female

DRUGS (3)
  1. ZYVOX [Suspect]
     Indication: DIABETIC FOOT
     Dosage: 1200 MG (600 MG, 2 IN 1 D)
     Dates: start: 20050503, end: 20050101
  2. CIPROFLOXACIN HCL [Concomitant]
  3. VANCOMYCIN HYDROCHLORIDE [Concomitant]

REACTIONS (1)
  - OPTIC NEUROPATHY [None]
